FAERS Safety Report 5597164-3 (Version None)
Quarter: 2007Q4

REPORT INFORMATION
  Report Type: 
  Country: None (occurrence: None)
  Receive Date: 20071221
  Receipt Date: 20071102
  Transmission Date: 20080405
  Serious: No
  Sender: FDA-Public Use
  Company Number: SPV1-2007-04817

PATIENT
  Age: 8 Year
  Sex: Male
  Weight: 16.3 kg

DRUGS (4)
  1. VYVANSE [Suspect]
     Indication: IMPULSIVE BEHAVIOUR
     Dosage: 30 MG, 1X/DAY:QD, ORAL
     Route: 048
     Dates: start: 20071101, end: 20071101
  2. CLARITIN /00413701/ (GLICLAZIDE) [Concomitant]
  3. SEASONALE (ETHINYLESTRADIOL, LEVONORGESTREL) [Concomitant]
  4. MIRALAX [Concomitant]

REACTIONS (7)
  - ABNORMAL BEHAVIOUR [None]
  - CONDITION AGGRAVATED [None]
  - INSOMNIA [None]
  - IRRITABILITY [None]
  - OFF LABEL USE [None]
  - PSYCHOMOTOR HYPERACTIVITY [None]
  - TIC [None]
